FAERS Safety Report 6433762-2 (Version None)
Quarter: 2009Q4

REPORT INFORMATION
  Report Type: 
  Country: None (occurrence: None)
  Receive Date: 20091106
  Receipt Date: 20091106
  Transmission Date: 20100525
  Serious: Yes (Life-Threatening, Hospitalization)
  Sender: FDA-Public Use
  Company Number: None

PATIENT
  Age: 77 Year
  Sex: Male

DRUGS (3)
  1. CARVEDILOL [Suspect]
     Indication: CARDIOVASCULAR DISORDER
     Dosage: 80 MG EVERY DAY PO
     Route: 048
     Dates: start: 20070911, end: 20081031
  2. CARVEDILOL [Suspect]
     Indication: HYPERTENSION
     Dosage: 80 MG EVERY DAY PO
     Route: 048
     Dates: start: 20070911, end: 20081031
  3. CARVEDILOL [Suspect]
     Indication: SURGERY
     Dosage: 80 MG EVERY DAY PO
     Route: 048
     Dates: start: 20070911, end: 20081031

REACTIONS (2)
  - ORTHOSTATIC HYPOTENSION [None]
  - SYNCOPE [None]
